FAERS Safety Report 24709325 (Version 3)
Quarter: 2025Q3

REPORT INFORMATION
  Report Type: Report from Study
  Country: US (occurrence: US)
  Receive Date: 20241208
  Receipt Date: 20250809
  Transmission Date: 20251021
  Serious: Yes (Life-Threatening, Hospitalization, Other)
  Sender: ALEXION PHARMACEUTICALS
  Company Number: US-AstraZeneca-2024A078856

PATIENT
  Age: 70 Year
  Sex: Male
  Weight: 78.471 kg

DRUGS (54)
  1. TEZSPIRE [Suspect]
     Active Substance: TEZEPELUMAB-EKKO
  2. TEZSPIRE [Suspect]
     Active Substance: TEZEPELUMAB-EKKO
  3. PULMICORT TURBUHALER [Suspect]
     Active Substance: BUDESONIDE
     Indication: Chronic obstructive pulmonary disease
     Route: 065
  4. PULMICORT TURBUHALER [Suspect]
     Active Substance: BUDESONIDE
     Route: 065
  5. PULMICORT TURBUHALER [Suspect]
     Active Substance: BUDESONIDE
     Route: 065
  6. PULMICORT TURBUHALER [Suspect]
     Active Substance: BUDESONIDE
     Route: 065
  7. PULMICORT TURBUHALER [Suspect]
     Active Substance: BUDESONIDE
     Route: 065
  8. PULMICORT TURBUHALER [Suspect]
     Active Substance: BUDESONIDE
     Route: 065
  9. PULMICORT TURBUHALER [Suspect]
     Active Substance: BUDESONIDE
     Route: 065
  10. PULMICORT TURBUHALER [Suspect]
     Active Substance: BUDESONIDE
     Route: 065
  11. PULMICORT TURBUHALER [Suspect]
     Active Substance: BUDESONIDE
     Route: 065
  12. PULMICORT TURBUHALER [Suspect]
     Active Substance: BUDESONIDE
     Route: 065
  13. PULMICORT TURBUHALER [Suspect]
     Active Substance: BUDESONIDE
     Route: 065
  14. PULMICORT TURBUHALER [Suspect]
     Active Substance: BUDESONIDE
     Route: 065
  15. PULMICORT TURBUHALER [Suspect]
     Active Substance: BUDESONIDE
     Route: 065
  16. PULMICORT TURBUHALER [Suspect]
     Active Substance: BUDESONIDE
     Route: 065
  17. PULMICORT TURBUHALER [Suspect]
     Active Substance: BUDESONIDE
  18. OMEPRAZOLE [Suspect]
     Active Substance: OMEPRAZOLE
     Dosage: 40 MILLIGRAM, QD
  19. DALIRESP [Suspect]
     Active Substance: ROFLUMILAST
  20. DALIRESP [Suspect]
     Active Substance: ROFLUMILAST
     Dosage: 1 DOSAGE FORM, QD
  21. MODERNA COVID-19 VACCINE [Suspect]
     Active Substance: ELASOMERAN
     Route: 065
  22. CEFDINIR [Concomitant]
     Active Substance: CEFDINIR
     Dosage: 300 MILLIGRAM, UNK, FREQUENCY: UNK
  23. CIPROFLOXACIN [Concomitant]
     Active Substance: CIPROFLOXACIN
  24. DENOSUMAB [Concomitant]
     Active Substance: DENOSUMAB
  25. METOPROLOL SUCCINATE [Concomitant]
     Active Substance: METOPROLOL SUCCINATE
     Dosage: 1 DOSAGE FORM, QD
  26. PREDNISONE [Concomitant]
     Active Substance: PREDNISONE
  27. PREDNISONE [Concomitant]
     Active Substance: PREDNISONE
     Dosage: 2 DOSAGE FORM, QD
     Dates: start: 20220317
  28. PREDNISONE [Concomitant]
     Active Substance: PREDNISONE
  29. PREDNISONE [Concomitant]
     Active Substance: PREDNISONE
  30. XARELTO [Concomitant]
     Active Substance: RIVAROXABAN
  31. TAMSULOSIN [Concomitant]
     Active Substance: TAMSULOSIN
  32. WARFARIN [Concomitant]
     Active Substance: WARFARIN
     Dosage: 1 DOSAGE FORM, QD
     Dates: start: 20240313
  33. XOLAIR [Concomitant]
     Active Substance: OMALIZUMAB
     Indication: Asthma
     Route: 065
  34. AZITHROMYCIN [Concomitant]
     Active Substance: AZITHROMYCIN
  35. TRELEGY ELLIPTA [Concomitant]
     Active Substance: FLUTICASONE FUROATE\UMECLIDINIUM BROMIDE\VILANTEROL TRIFENATATE
     Route: 065
  36. PREDNISONE [Concomitant]
     Active Substance: PREDNISONE
  37. BROVANA [Concomitant]
     Active Substance: ARFORMOTEROL TARTRATE
     Indication: Chronic obstructive pulmonary disease
     Dosage: 1 VIAL VIA NEBULIZER
     Route: 065
  38. DILTIAZEM [Concomitant]
     Active Substance: DILTIAZEM
     Dosage: 1 DOSAGE FORM, QD
  39. MONTELUKAST SODIUM [Concomitant]
     Active Substance: MONTELUKAST SODIUM
  40. VFEND [Concomitant]
     Active Substance: VORICONAZOLE
     Dosage: 1 DOSAGE FORM, QD
  41. SINGULAIR [Concomitant]
     Active Substance: MONTELUKAST SODIUM
     Indication: Asthma
     Dosage: 1 DOSAGE FORM, QD
     Dates: start: 2020
  42. SINGULAIR [Concomitant]
     Active Substance: MONTELUKAST SODIUM
     Indication: Chronic obstructive pulmonary disease
  43. YUPELRI [Concomitant]
     Active Substance: REVEFENACIN
     Indication: Chronic obstructive pulmonary disease
  44. DIFLUCAN [Concomitant]
     Active Substance: FLUCONAZOLE
     Route: 065
  45. DOXYCYCLINE HYCLATE [Concomitant]
     Active Substance: DOXYCYCLINE HYCLATE
     Dosage: 1 DOSAGE FORM, BID
  46. LEVOFLOXACIN [Concomitant]
     Active Substance: LEVOFLOXACIN
     Dosage: 1 DOSAGE FORM, QD
     Dates: start: 20220511
  47. LEVOFLOXACIN [Concomitant]
     Active Substance: LEVOFLOXACIN
     Dosage: 1 DOSAGE FORM, QD
     Dates: start: 20240313
  48. FLUCONAZOLE [Concomitant]
     Active Substance: FLUCONAZOLE
     Dosage: 2 DOSAGE FORM, QD
     Dates: start: 20210209, end: 20210224
  49. FLUCONAZOLE [Concomitant]
     Active Substance: FLUCONAZOLE
     Dosage: 2 DOSAGE FORM, QD
     Dates: start: 20220209
  50. FUROSEMIDE [Concomitant]
     Active Substance: FUROSEMIDE
  51. Metronldazole [Concomitant]
  52. FEXOFENADINE HYDROCHLORIDE [Concomitant]
     Active Substance: FEXOFENADINE HYDROCHLORIDE
     Dosage: 1 DOSAGE FORM, QD
  53. EPINEPHRINE [Concomitant]
     Active Substance: EPINEPHRINE
  54. LISINOPRIL [Concomitant]
     Active Substance: LISINOPRIL

REACTIONS (21)
  - Respiratory failure [Unknown]
  - Chronic obstructive pulmonary disease [Unknown]
  - Lactic acidosis [Unknown]
  - Aortic arteriosclerosis [Unknown]
  - Pneumonia [Unknown]
  - Bronchiolitis [Unknown]
  - Aspergillus infection [Unknown]
  - Sepsis [Unknown]
  - Atrial fibrillation [Unknown]
  - Cardiac failure congestive [Unknown]
  - Diverticulitis [Unknown]
  - Seasonal allergy [Unknown]
  - Emphysema [Unknown]
  - Leukocytosis [Unknown]
  - Hyperglycaemia [Unknown]
  - Coagulopathy [Unknown]
  - Haematuria [Unknown]
  - Hepatic steatosis [Unknown]
  - Bronchitis [Unknown]
  - Respiratory tract infection [Unknown]
  - Fatigue [Unknown]

NARRATIVE: CASE EVENT DATE: 20200701
